FAERS Safety Report 5477960-3 (Version None)
Quarter: 2007Q4

REPORT INFORMATION
  Report Type: 
  Country: None (occurrence: None)
  Receive Date: 20071005
  Receipt Date: 20070926
  Transmission Date: 20080405
  Serious: Yes (Other)
  Sender: FDA-Public Use
  Company Number: US-JNJFOC-20070905781

PATIENT
  Sex: Female
  Weight: 63.5 kg

DRUGS (3)
  1. FENTANYL TRANSDERMAL SYSTEM [Suspect]
     Indication: BACK PAIN
     Route: 062
  2. INHALER [Concomitant]
     Indication: LUNG DISORDER
     Route: 055
  3. ATENOLOL [Concomitant]
     Indication: CARDIAC DISORDER
     Route: 048

REACTIONS (3)
  - GASTROENTERITIS [None]
  - PNEUMONIA [None]
  - WRONG TECHNIQUE IN DRUG USAGE PROCESS [None]
